FAERS Safety Report 6309639-X (Version None)
Quarter: 2009Q3

REPORT INFORMATION
  Report Type: 
  Country: None (occurrence: None)
  Receive Date: 20090811
  Receipt Date: 20050510
  Transmission Date: 20100115
  Serious: Yes (Death)
  Sender: FDA-Public Use
  Company Number: ACC000033

PATIENT
  Sex: Male

DRUGS (6)
  1. DOPAMINE HCL [Suspect]
     Indication: DRUG USE FOR UNKNOWN INDICATION
     Dosage: IV
     Route: 042
  2. MIDAZOLAM HCL [Suspect]
     Indication: DRUG USE FOR UNKNOWN INDICATION
     Dosage: IV
     Route: 042
  3. MORPHINE SULFATE [Suspect]
     Indication: DRUG USE FOR UNKNOWN INDICATION
     Dosage: IV
     Route: 042
  4. NIMBEX [Suspect]
     Indication: DRUG USE FOR UNKNOWN INDICATION
  5. AMIODARONE HCL [Suspect]
     Indication: DRUG USE FOR UNKNOWN INDICATION
  6. LASIX [Suspect]
     Indication: DRUG USE FOR UNKNOWN INDICATION

REACTIONS (2)
  - BLOOD PRESSURE DECREASED [None]
  - TACHYCARDIA [None]
